FAERS Safety Report 10250197 (Version 1)
Quarter: 2014Q2

REPORT INFORMATION
  Report Type: Spontaneous
  Country: US (occurrence: US)
  Receive Date: 20140620
  Receipt Date: 20140620
  Transmission Date: 20141212
  Serious: Yes (Other)
  Sender: FDA-Public Use
  Company Number: US-BRISTOL-MYERS SQUIBB COMPANY-20777686

PATIENT
  Age: 53 Year
  Sex: Female

DRUGS (2)
  1. ELIQUIS [Suspect]
     Indication: THROMBOSIS
     Dates: start: 20140509
  2. CARVEDILOL [Concomitant]

REACTIONS (1)
  - Rash generalised [Unknown]
